FAERS Safety Report 5243521-4 (Version None)
Quarter: 2007Q1

REPORT INFORMATION
  Report Type: 
  Country: None (occurrence: None)
  Receive Date: 20070222
  Receipt Date: 20070207
  Transmission Date: 20070707
  Serious: Yes (Hospitalization, Other)
  Sender: FDA-Public Use
  Company Number: PHEH2007US01514

PATIENT
  Sex: Male

DRUGS (5)
  1. IMDUR [Suspect]
     Indication: ANGINA PECTORIS
     Dosage: 15 MG, QD
  2. COREG [Suspect]
  3. SINEMET [Concomitant]
     Indication: PARKINSON'S DISEASE
  4. COMTAN [Suspect]
     Indication: PARKINSON'S DISEASE
     Dosage: UNK, TID
  5. COMTAN [Suspect]
     Dosage: UNK, BID
     Route: 048

REACTIONS (10)
  - BALANCE DISORDER [None]
  - BLOOD PRESSURE FLUCTUATION [None]
  - CHEST PAIN [None]
  - CONSTIPATION [None]
  - DIARRHOEA [None]
  - DYSPNOEA [None]
  - GAIT DISTURBANCE [None]
  - HYPOTENSION [None]
  - PARKINSON'S DISEASE [None]
  - VENTRICULAR DYSFUNCTION [None]
